FAERS Safety Report 14380078 (Version 2)
Quarter: 2018Q2

REPORT INFORMATION
  Report Type: Spontaneous
  Country: US (occurrence: US)
  Receive Date: 20180112
  Receipt Date: 20180606
  Transmission Date: 20180711
  Serious: No
  Sender: FDA-Public Use
  Company Number: US-PFIZER INC-2018009105

PATIENT
  Age: 51 Year
  Sex: Female
  Weight: 95.24 kg

DRUGS (4)
  1. DOXORUBICIN [Concomitant]
     Active Substance: DOXORUBICIN
  2. CARBOPLATIN. [Concomitant]
     Active Substance: CARBOPLATIN
  3. DOCETAXEL. [Suspect]
     Active Substance: DOCETAXEL
     Indication: BREAST CANCER
     Dosage: AT 113 - 150 MG EVERY THREE WEEKS AND RECEIVED ON SEPARATE OCCASIONS
     Dates: start: 20141002, end: 20160113
  4. CYCLOPHOSPHAMIDE. [Concomitant]
     Active Substance: CYCLOPHOSPHAMIDE

REACTIONS (1)
  - Alopecia [Not Recovered/Not Resolved]
